FAERS Safety Report 6185935-4 (Version None)
Quarter: 2009Q2

REPORT INFORMATION
  Report Type: 
  Country: None (occurrence: None)
  Receive Date: 20090507
  Receipt Date: 20090430
  Transmission Date: 20091009
  Serious: Yes (Other)
  Sender: FDA-Public Use
  Company Number: 2009-01702

PATIENT
  Age: 51 Year
  Sex: Female
  Weight: 62.2 kg

DRUGS (8)
  1. VELCADE [Suspect]
     Indication: MULTIPLE MYELOMA
     Dates: start: 20070801, end: 20080201
  2. VELCADE [Suspect]
     Indication: MULTIPLE MYELOMA
     Dates: start: 20080401
  3. REVLIMID [Suspect]
     Indication: MULTIPLE MYELOMA
     Dosage: 10 MG, ORAL ; 25 MG
     Route: 048
     Dates: start: 20060923
  4. REVLIMID [Suspect]
     Indication: MULTIPLE MYELOMA
     Dosage: 10 MG, ORAL ; 25 MG
     Route: 048
     Dates: start: 20080902
  5. SOLU-MEDROL [Concomitant]
  6. ZOMETA [Concomitant]
  7. ARANESP [Concomitant]
  8. BACTRIM [Concomitant]

REACTIONS (9)
  - FATIGUE [None]
  - HAEMATOCRIT DECREASED [None]
  - HAEMOGLOBIN DECREASED [None]
  - HYPOAESTHESIA FACIAL [None]
  - HYPOKALAEMIA [None]
  - MUSCULOSKELETAL CHEST PAIN [None]
  - PLATELET COUNT DECREASED [None]
  - RED BLOOD CELL COUNT DECREASED [None]
  - WHITE BLOOD CELL COUNT DECREASED [None]
